FAERS Safety Report 6254203-4 (Version None)
Quarter: 2009Q2

REPORT INFORMATION
  Report Type: 
  Country: None (occurrence: None)
  Receive Date: 20090630
  Receipt Date: 20080513
  Transmission Date: 20091009
  Serious: Yes (Hospitalization, Other)
  Sender: FDA-Public Use
  Company Number: US-SEPTODONT-200800086

PATIENT
  Age: 18 Year
  Sex: Female

DRUGS (4)
  1. SEPTOCAINE [Suspect]
     Indication: LOCAL ANAESTHESIA
     Dosage: 1/2 CARTRIDGE DENTAL
     Route: 004
     Dates: start: 20080513, end: 20080513
  2. 4% CITANEST FORTE DENTAL WITH EPINEPHRINE 1:200,000 (PRILOCAINE, EPINE [Concomitant]
  3. AMOXICILLIN [Concomitant]
  4. (ALBUTEROL) [Concomitant]

REACTIONS (1)
  - TYPE I HYPERSENSITIVITY [None]
